FAERS Safety Report 7756899-4 (Version None)
Quarter: 2011Q3

REPORT INFORMATION
  Report Type: 
  Country: None (occurrence: None)
  Receive Date: 20110916
  Receipt Date: 20110912
  Transmission Date: 20111222
  Serious: Yes (Other)
  Sender: FDA-Public Use
  Company Number: CA-GLAXOSMITHKLINE-A0937200A

PATIENT
  Sex: Male

DRUGS (11)
  1. TRAZODONE HCL [Concomitant]
  2. PROCHLORPERAZINE [Concomitant]
  3. CLONAZEPAM [Concomitant]
  4. TYKERB [Suspect]
     Indication: BREAST CANCER METASTATIC
     Dosage: 1500MG PER DAY
     Route: 048
     Dates: start: 20110712, end: 20110907
  5. METHADONE HCL [Concomitant]
  6. CYMBALTA [Concomitant]
  7. NICODERM [Concomitant]
  8. PANTOPRAZOLE [Concomitant]
  9. DECADRON [Concomitant]
  10. GABAPENTIN [Concomitant]
  11. ATIVAN [Concomitant]

REACTIONS (5)
  - OFF LABEL USE [None]
  - PNEUMONIA [None]
  - HOT FLUSH [None]
  - COLD SWEAT [None]
  - DIARRHOEA [None]
